FAERS Safety Report 7012316-3 (Version None)
Quarter: 2010Q3

REPORT INFORMATION
  Report Type: 
  Country: None (occurrence: None)
  Receive Date: 20100924
  Receipt Date: 20100916
  Transmission Date: 20110219
  Serious: Yes (Disabling, Other)
  Sender: FDA-Public Use
  Company Number: US-JNJFOC-20100906966

PATIENT
  Sex: Female

DRUGS (1)
  1. LEVAQUIN [Suspect]
     Indication: PRODUCT USED FOR UNKNOWN INDICATION
     Route: 065

REACTIONS (6)
  - BEDRIDDEN [None]
  - BRAIN INJURY [None]
  - DISABILITY [None]
  - JOINT DESTRUCTION [None]
  - PALPITATIONS [None]
  - TENDON RUPTURE [None]
